FAERS Safety Report 9580661 (Version 1)
Quarter: 2013Q4

REPORT INFORMATION
  Report Type: Spontaneous
  Country: IE (occurrence: IE)
  Receive Date: 20131002
  Receipt Date: 20131002
  Transmission Date: 20140711
  Serious: Yes (Other)
  Sender: FDA-Public Use
  Company Number: IE-COVIDIEN/TYCO HEALTHCARE/MALLINCKRODT-T201304439

PATIENT
  Age: 41 Year
  Sex: Female

DRUGS (2)
  1. TECHNESCAN [Suspect]
     Indication: VENTILATION/PERFUSION SCAN
     Dosage: 1 DOSAGE FORMS, ONCE
     Route: 042
     Dates: start: 20130830, end: 20130830
  2. ULTRA TECHNEKOW FM [Suspect]
     Indication: VENTILATION/PERFUSION SCAN
     Dosage: UNK, SINGLE
     Dates: start: 20130830, end: 20130830

REACTIONS (2)
  - Chest discomfort [Recovered/Resolved]
  - Flushing [Recovered/Resolved]
